FAERS Safety Report 16239148 (Version 1)
Quarter: 2019Q2

REPORT INFORMATION
  Report Type: Spontaneous
  Country: US (occurrence: US)
  Receive Date: 20190424
  Receipt Date: 20190424
  Transmission Date: 20190711
  Serious: No
  Sender: FDA-Public Use
  Company Number: None

PATIENT
  Age: 62 Year
  Sex: Female
  Weight: 54 kg

DRUGS (20)
  1. VITAMIN E [Concomitant]
     Active Substance: .ALPHA.-TOCOPHEROL
  2. ZOLMITRIPTAN. [Suspect]
     Active Substance: ZOLMITRIPTAN
     Indication: MIGRAINE
     Dosage: ?          QUANTITY:1 TABLET(S);?
     Route: 048
  3. PROGESTERONE. [Concomitant]
     Active Substance: PROGESTERONE
  4. TESTOSTERONE CREAM [Concomitant]
     Active Substance: TESTOSTERONE
  5. BIOTIN [Concomitant]
     Active Substance: BIOTIN
  6. VITAMIN K2 [Concomitant]
     Active Substance: MENAQUINONE 6
  7. PROBIOTICS [Concomitant]
     Active Substance: PROBIOTICS NOS
  8. TUMERIC [Concomitant]
     Active Substance: HERBALS\TURMERIC
  9. NATURE-THROID [Concomitant]
     Active Substance: THYROID, PORCINE
  10. CINNAMON. [Concomitant]
     Active Substance: CINNAMON
  11. CHONDROITIN [Concomitant]
     Active Substance: CHONDROITIN
  12. PROPRANOLOL [Concomitant]
     Active Substance: PROPRANOLOL HYDROCHLORIDE
  13. ALENDRONATE SODIUM. [Concomitant]
     Active Substance: ALENDRONATE SODIUM
  14. VITAMIN D3 [Concomitant]
     Active Substance: CHOLECALCIFEROL
  15. MAGNESIUM [Concomitant]
     Active Substance: MAGNESIUM
  16. WELLBUTRIN [Concomitant]
     Active Substance: BUPROPION HYDROCHLORIDE
  17. GLUCOSAMINE [Concomitant]
     Active Substance: GLUCOSAMINE
  18. VITAMIN B12 [Concomitant]
     Active Substance: CYANOCOBALAMIN
  19. MINI-VELLE [Concomitant]
  20. MULTIVITAMINS [Concomitant]
     Active Substance: VITAMINS

REACTIONS (1)
  - Pain in jaw [None]

NARRATIVE: CASE EVENT DATE: 20190422
